FAERS Safety Report 8340989-1 (Version None)
Quarter: 2012Q2

REPORT INFORMATION
  Report Type: 
  Country: None (occurrence: None)
  Receive Date: 20120507
  Receipt Date: 20111011
  Transmission Date: 20120825
  Serious: No
  Sender: FDA-Public Use
  Company Number: US-MYLANLABS-2011S1020020

PATIENT
  Age: 26 Year
  Sex: Female

DRUGS (2)
  1. METHYLDOPA [Suspect]
     Indication: HYPERTENSION
     Dates: start: 20100801, end: 20110901
  2. METHYLDOPA [Suspect]
     Dates: start: 20110901

REACTIONS (1)
  - DRUG SCREEN FALSE POSITIVE [None]
